FAERS Safety Report 10650401 (Version 1)
Quarter: 2014Q4

REPORT INFORMATION
  Report Type: Spontaneous
  Country: US (occurrence: US)
  Receive Date: 20141213
  Receipt Date: 20141213
  Transmission Date: 20150529
  Serious: No
  Sender: FDA-Public Use
  Company Number: US-BAUSCH-BL-2014-004115

PATIENT
  Age: 63 Year
  Sex: Female
  Weight: 55.39 kg

DRUGS (1)
  1. XENAZINE [Suspect]
     Active Substance: TETRABENAZINE
     Indication: HUNTINGTON^S DISEASE
     Route: 048
     Dates: start: 20140806

REACTIONS (2)
  - Weight increased [Unknown]
  - Medication error [Not Recovered/Not Resolved]

NARRATIVE: CASE EVENT DATE: 201408
